FAERS Safety Report 7176783-7 (Version None)
Quarter: 2010Q4

REPORT INFORMATION
  Report Type: 
  Country: None (occurrence: None)
  Receive Date: 20101220
  Receipt Date: 20101209
  Transmission Date: 20110411
  Serious: Yes (Hospitalization)
  Sender: FDA-Public Use
  Company Number: FR-JNJFOC-20101204038

PATIENT
  Age: 57 Year
  Sex: Female

DRUGS (4)
  1. TAVANIC [Suspect]
     Indication: TRACHEITIS
     Route: 048
  2. BRONCHOKOD [Suspect]
     Indication: TRACHEITIS
     Route: 048
  3. RHINOFLUIMUCIL [Suspect]
     Indication: TRACHEITIS
     Route: 065
  4. PNEUMOREL [Suspect]
     Indication: TRACHEITIS
     Route: 065

REACTIONS (3)
  - BRONCHOSPASM [None]
  - DYSPNOEA [None]
  - RASH MACULO-PAPULAR [None]
